FAERS Safety Report 19070389 (Version 4)
Quarter: 2021Q2

REPORT INFORMATION
  Report Type: Report from Study
  Country: RU (occurrence: RU)
  Receive Date: 20210329
  Receipt Date: 20210412
  Transmission Date: 20210717
  Serious: No
  Sender: FDA-Public Use
  Company Number: RU-EISAI MEDICAL RESEARCH-EC-2021-090318

PATIENT
  Age: 18 Year
  Sex: Male
  Weight: 65 kg

DRUGS (3)
  1. LENVATINIB [Suspect]
     Active Substance: LENVATINIB
     Indication: NEUROBLASTOMA
     Route: 048
     Dates: start: 20201230, end: 20210318
  2. L?THYROXIN [Concomitant]
     Active Substance: LEVOTHYROXINE SODIUM
     Dates: start: 20210224
  3. LENVATINIB [Suspect]
     Active Substance: LENVATINIB
     Dosage: FLUCTUATING DOSE
     Route: 048
     Dates: start: 20210320

REACTIONS (1)
  - Hypertension [Recovering/Resolving]

NARRATIVE: CASE EVENT DATE: 20210316
